FAERS Safety Report 10813611 (Version 1)
Quarter: 2015Q1

REPORT INFORMATION
  Report Type: Spontaneous
  Country: IT (occurrence: IT)
  Receive Date: 20150218
  Receipt Date: 20150218
  Transmission Date: 20150721
  Serious: Yes (Hospitalization)
  Sender: FDA-Public Use
  Company Number: IT-TEVA-539915ISR

PATIENT
  Age: 59 Year
  Sex: Male
  Weight: 42 kg

DRUGS (3)
  1. CISPLATINO SANDOZ - 1 MG/ML CONCENTRATO PER SOLUZIONE PER INFUSIONE [Suspect]
     Active Substance: CISPLATIN
     Indication: TONGUE NEOPLASM
     Dosage: 115 MG CYCLICAL
     Route: 042
     Dates: start: 20141105, end: 20150115
  2. ERBITUX [Suspect]
     Active Substance: CETUXIMAB
     Indication: TONGUE NEOPLASM
     Dosage: 385 MG CYCLICAL
     Route: 042
     Dates: start: 20141105, end: 20150122
  3. PACLITAXEL TEVA - 6 MG/ML CONCENTRATO PER SOLUZIONE PER INFUSIONE [Suspect]
     Active Substance: PACLITAXEL
     Indication: TONGUE NEOPLASM
     Dosage: 269 MG CYCLICAL
     Route: 042
     Dates: start: 20141105, end: 20150115

REACTIONS (3)
  - Bronchopneumonia [Not Recovered/Not Resolved]
  - Dyspnoea [Not Recovered/Not Resolved]
  - Leukocytosis [Not Recovered/Not Resolved]

NARRATIVE: CASE EVENT DATE: 20150201
